FAERS Safety Report 6325173-5 (Version None)
Quarter: 2009Q3

REPORT INFORMATION
  Report Type: 
  Country: None (occurrence: None)
  Receive Date: 20090824
  Receipt Date: 20090702
  Transmission Date: 20100115
  Serious: No
  Sender: FDA-Public Use
  Company Number: US-ABBOTT-09P-163-0583128-00

PATIENT
  Sex: Male
  Weight: 129.39 kg

DRUGS (3)
  1. NIASPAN [Suspect]
     Indication: LOW DENSITY LIPOPROTEIN INCREASED
     Dosage: 500MG AT HS
     Dates: start: 20090601
  2. BLOOD PRESSURE MEDICINE [Concomitant]
     Indication: BLOOD PRESSURE
  3. MEDICINE FOR SUGAR [Concomitant]
     Indication: DRUG USE FOR UNKNOWN INDICATION

REACTIONS (1)
  - FLUSHING [None]
